FAERS Safety Report 5448314-0 (Version None)
Quarter: 2007Q3

REPORT INFORMATION
  Report Type: 
  Country: None (occurrence: None)
  Receive Date: 20070906
  Receipt Date: 20070823
  Transmission Date: 20080115
  Serious: Yes (Hospitalization)
  Sender: FDA-Public Use
  Company Number: ACO_00377_2007

PATIENT
  Sex: Male

DRUGS (3)
  1. SIRDALUD [Suspect]
     Indication: DRUG USE FOR UNKNOWN INDICATION
     Dosage: 4 MG QD
     Dates: start: 20070724
  2. PRADIF                   (PRADIF - TAMSULOSIN  HYDROCHLORIDE) [Suspect]
     Indication: BENIGN PROSTATIC HYPERPLASIA
     Dosage: 1 DF QD
     Dates: start: 20070717, end: 20070724
  3. BLOPRESS                (CANDESARTAN HYDROCHLORIDE ) [Suspect]
     Indication: HYPERTENSION
     Dosage: DF

REACTIONS (6)
  - BRADYCARDIA [None]
  - DISEASE RECURRENCE [None]
  - HYPOTENSION [None]
  - NODAL RHYTHM [None]
  - SINOATRIAL BLOCK [None]
  - SYNCOPE [None]
